FAERS Safety Report 14125366 (Version 1)
Quarter: 2017Q4

REPORT INFORMATION
  Report Type: Spontaneous
  Country: DE (occurrence: DE)
  Receive Date: 20171025
  Receipt Date: 20171025
  Transmission Date: 20180321
  Serious: Yes (Hospitalization, Other)
  Sender: FDA-Public Use
  Company Number: DE-SA-2017SA201933

PATIENT
  Sex: Female

DRUGS (1)
  1. FERRLECIT [Suspect]
     Active Substance: SODIUM FERRIC GLUCONATE COMPLEX
     Dosage: DOSE STRENGTH- 62.5 MG?DOSE, FREQUENCY-6 AMPOULES OF 5ML ALL AT ONCE
     Route: 042
     Dates: start: 20170721, end: 20170721

REACTIONS (3)
  - Sudden visual loss [Unknown]
  - Deafness [Unknown]
  - Anaphylactic reaction [Unknown]

NARRATIVE: CASE EVENT DATE: 2017
